FAERS Safety Report 12335495 (Version 2)
Quarter: 2016Q3

REPORT INFORMATION
  Report Type: Spontaneous
  Country: US (occurrence: US)
  Receive Date: 20160504
  Receipt Date: 20160819
  Transmission Date: 20161109
  Serious: No
  Sender: FDA-Public Use
  Company Number: US-JNJFOC-20160411954

PATIENT
  Age: 60 Year
  Sex: Male

DRUGS (14)
  1. LEUPRORELIN ACETATE [Concomitant]
     Active Substance: LEUPROLIDE ACETATE
  2. VITAMIN C [Concomitant]
     Active Substance: ASCORBIC ACID
  3. PREDNISONE. [Concomitant]
     Active Substance: PREDNISONE
     Route: 065
  4. GINGER. [Concomitant]
     Active Substance: GINGER
     Route: 065
  5. CRESTOR [Concomitant]
     Active Substance: ROSUVASTATIN CALCIUM
  6. MAGNESIUM OXIDE. [Concomitant]
     Active Substance: MAGNESIUM OXIDE
  7. PROLIA [Concomitant]
     Active Substance: DENOSUMAB
  8. ZYTIGA [Suspect]
     Active Substance: ABIRATERONE ACETATE
     Indication: PROSTATE CANCER
     Route: 048
  9. CALTRATE 600+D [Concomitant]
  10. GARLIC. [Concomitant]
     Active Substance: GARLIC
  11. FLAXSEED [Concomitant]
     Active Substance: FLAX SEED
  12. NASONEX [Concomitant]
     Active Substance: MOMETASONE FUROATE
  13. MATURE MULTIVITAMINS [Concomitant]
  14. POTASSIUM [Concomitant]
     Active Substance: POTASSIUM

REACTIONS (2)
  - Headache [Unknown]
  - Nausea [Unknown]
